FAERS Safety Report 5690926-3 (Version None)
Quarter: 2008Q2

REPORT INFORMATION
  Report Type: 
  Country: None (occurrence: None)
  Receive Date: 20080401
  Receipt Date: 20080325
  Transmission Date: 20081010
  Serious: Yes (Other)
  Sender: FDA-Public Use
  Company Number: US-ALLERGAN-0803503US

PATIENT
  Sex: Female

DRUGS (1)
  1. PRED FORTE [Suspect]
     Indication: INFLAMMATION
     Route: 047
     Dates: start: 20080201, end: 20080201

REACTIONS (1)
  - TRIGEMINAL NEURALGIA [None]
